FAERS Safety Report 21355878 (Version 1)
Quarter: 2022Q3

REPORT INFORMATION
  Report Type: Spontaneous
  Country: US (occurrence: None)
  Receive Date: 20220920
  Receipt Date: 20220920
  Transmission Date: 20221027
  Serious: Yes (Hospitalization)
  Sender: FDA-Public Use
  Company Number: None

PATIENT
  Age: 17 Year
  Sex: Male
  Weight: 79.11 kg

DRUGS (5)
  1. HALOPERIDOL [Suspect]
     Active Substance: HALOPERIDOL
     Dosage: FREQUENCY : TWICE A DAY;?
     Route: 048
     Dates: start: 2022, end: 20220915
  2. HALOPERIDOL [Suspect]
     Active Substance: HALOPERIDOL
     Dosage: FREQUENCY : AS NEEDED;?
     Route: 030
     Dates: start: 20220213, end: 20220215
  3. Benztropine - 1mg by mouth twice daily daily as needed for EPS [Concomitant]
     Dates: start: 20220214
  4. clonidine 0.1mg daily at bedtime for 90 days [Concomitant]
     Dates: start: 20220214
  5. doxycycline 100mg BID for 25 days for acne [Concomitant]

REACTIONS (2)
  - Neuroleptic malignant syndrome [None]
  - Therapy cessation [None]

NARRATIVE: CASE EVENT DATE: 20220215
